FAERS Safety Report 6894999-1 (Version None)
Quarter: 2010Q3

REPORT INFORMATION
  Report Type: 
  Country: None (occurrence: None)
  Receive Date: 20100708
  Receipt Date: 20090811
  Transmission Date: 20110219
  Serious: Yes (Other)
  Sender: FDA-Public Use
  Company Number: 2009256234

PATIENT

DRUGS (1)
  1. CHANTIX [Suspect]

REACTIONS (4)
  - DELUSION [None]
  - FEAR [None]
  - HALLUCINATION [None]
  - PSYCHOTIC DISORDER [None]
